FAERS Safety Report 7387211-0 (Version None)
Quarter: 2011Q1

REPORT INFORMATION
  Report Type: 
  Country: None (occurrence: None)
  Receive Date: 20110331
  Receipt Date: 20110323
  Transmission Date: 20110831
  Serious: Yes (Hospitalization)
  Sender: FDA-Public Use
  Company Number: MY-JNJFOC-20101007261

PATIENT
  Sex: Female
  Weight: 58.7 kg

DRUGS (20)
  1. GOLIMUMAB [Suspect]
     Route: 058
  2. PLACEBO [Suspect]
     Indication: RHEUMATOID ARTHRITIS
     Route: 048
  3. ANTI-FUNGAL [Concomitant]
     Route: 061
  4. BETNOVATE [Concomitant]
     Route: 061
  5. FOLIC ACID [Concomitant]
     Route: 048
  6. ETORICOXIB [Concomitant]
     Route: 048
  7. DAKTARIN [Concomitant]
     Route: 061
  8. OMEPRAZOLE [Concomitant]
     Route: 048
  9. SARNA [Concomitant]
     Route: 061
  10. LEVOTHYROXINE SODIUM [Concomitant]
     Route: 048
  11. ETORICOXIB [Concomitant]
     Route: 048
  12. AQUEOUS [Concomitant]
     Route: 061
  13. NATURAL TEARS [Concomitant]
     Route: 061
  14. ETORICOXIB [Concomitant]
     Route: 048
  15. AQUEOUS [Concomitant]
     Route: 061
  16. PIRITON [Concomitant]
     Route: 048
  17. GOLIMUMAB [Suspect]
     Indication: RHEUMATOID ARTHRITIS
     Route: 058
  18. ASCORBIC ACID [Concomitant]
     Route: 048
  19. CLOTRIMAZOLE [Concomitant]
     Route: 061
  20. FUCICORT [Concomitant]
     Route: 061

REACTIONS (1)
  - NECROTISING FASCIITIS [None]
